FAERS Safety Report 4497285-2 (Version None)
Quarter: 2004Q4

REPORT INFORMATION
  Report Type: 
  Country: None (occurrence: None)
  Receive Date: 20041110
  Receipt Date: 20040924
  Transmission Date: 20050328
  Serious: Yes (Other)
  Sender: FDA-Public Use
  Company Number: PHFR2004GB03632

PATIENT
  Age: 9 Year
  Sex: Male

DRUGS (2)
  1. RITALIN [Suspect]
     Indication: ATTENTION DEFICIT/HYPERACTIVITY DISORDER
     Dosage: 10 MG, BID
  2. RITALIN [Suspect]
     Dosage: 35MG/DAY
     Route: 048

REACTIONS (4)
  - ASTHENIA [None]
  - CEREBRAL ISCHAEMIA [None]
  - HEADACHE [None]
  - PARAESTHESIA [None]
